FAERS Safety Report 23740174 (Version 3)
Quarter: 2024Q2

REPORT INFORMATION
  Report Type: Spontaneous
  Country: FR (occurrence: FR)
  Receive Date: 20240414
  Receipt Date: 20240430
  Transmission Date: 20240716
  Serious: Yes (Death)
  Sender: FDA-Public Use
  Company Number: None

PATIENT
  Age: 20 Year
  Sex: Male

DRUGS (7)
  1. RISPERDAL [Suspect]
     Active Substance: RISPERIDONE
     Indication: Aggression
     Route: 048
     Dates: start: 20230504, end: 20230510
  2. RISPERDAL [Suspect]
     Active Substance: RISPERIDONE
     Route: 048
     Dates: start: 20230510, end: 20230512
  3. LOXAPINE [Suspect]
     Active Substance: LOXAPINE
     Indication: Aggression
     Dosage: 5 MG 3X/J + 12.5 MG NUIT
     Route: 048
     Dates: start: 20230511, end: 20230512
  4. LOXAPINE [Suspect]
     Active Substance: LOXAPINE
     Route: 048
     Dates: start: 20230504, end: 20230505
  5. LOXAPINE [Suspect]
     Active Substance: LOXAPINE
     Route: 048
     Dates: start: 20230510, end: 20230511
  6. LOXAPINE [Suspect]
     Active Substance: LOXAPINE
     Route: 048
     Dates: start: 20230505, end: 20230505
  7. LOXAPINE [Suspect]
     Active Substance: LOXAPINE
     Route: 048
     Dates: start: 20230512, end: 20230512

REACTIONS (2)
  - Sudden cardiac death [Fatal]
  - Death [Fatal]

NARRATIVE: CASE EVENT DATE: 20230513
